FAERS Safety Report 9021404 (Version 1)
Quarter: 2013Q1

REPORT INFORMATION
  Report Type: Spontaneous
  Country: US (occurrence: US)
  Receive Date: 20130119
  Receipt Date: 20130119
  Transmission Date: 20140127
  Serious: No
  Sender: FDA-Public Use
  Company Number: US-ALLERGAN-1202320US

PATIENT
  Age: 47 None
  Sex: Female

DRUGS (3)
  1. BOTOX COSMETIC [Suspect]
     Indication: SKIN WRINKLING
     Dosage: 17 UNITS, SINGLE
     Route: 030
     Dates: start: 20110611, end: 20110611
  2. BOTOX COSMETIC [Suspect]
     Indication: SKIN WRINKLING
     Dosage: 3 UNITS, SINGLE
     Route: 030
     Dates: start: 20110611, end: 20110611
  3. BOTOX COSMETIC [Suspect]
     Indication: SKIN WRINKLING
     Dosage: 13 UNITS, SINGLE
     Dates: start: 20110611, end: 20110611

REACTIONS (4)
  - Photophobia [Recovering/Resolving]
  - Drug effect prolonged [Unknown]
  - Wrong technique in drug usage process [Unknown]
  - Headache [Recovered/Resolved]
